FAERS Safety Report 5229617-1 (Version None)
Quarter: 2007Q1

REPORT INFORMATION
  Report Type: 
  Country: None (occurrence: None)
  Receive Date: 20070201
  Receipt Date: 20070118
  Transmission Date: 20070707
  Serious: Yes (Hospitalization)
  Sender: FDA-Public Use
  Company Number: 010057

PATIENT
  Age: 74 Year
  Sex: Male
  Weight: 83.9 kg

DRUGS (5)
  1. METHOTREXATE [Suspect]
     Indication: MULTIPLE SCLEROSIS
     Dosage: 3 TABLET, WEEKLY, ORAL
     Route: 048
     Dates: start: 20050501, end: 20061001
  2. DITROPAN [Concomitant]
  3. HYTRIN [Concomitant]
  4. AMANTADINE HCL [Concomitant]
  5. AVODART [Concomitant]

REACTIONS (2)
  - PYELONEPHRITIS [None]
  - URINARY TRACT INFECTION [None]
